FAERS Safety Report 6025847-X (Version None)
Quarter: 2008Q4

REPORT INFORMATION
  Report Type: 
  Country: None (occurrence: None)
  Receive Date: 20081224
  Receipt Date: 20081217
  Transmission Date: 20090506
  Serious: Yes (Hospitalization)
  Sender: FDA-Public Use
  Company Number: CLOF-1000232

PATIENT
  Age: 60 Year
  Sex: Male
  Weight: 112.9 kg

DRUGS (51)
  1. CLOLAR [Suspect]
     Indication: CHRONIC LYMPHOCYTIC LEUKAEMIA
     Dosage: 72 MG, QDX5, INTRAVENOUS
     Route: 042
     Dates: start: 20080604, end: 20080608
  2. BUSULFAN(BUSULFAN) [Suspect]
     Indication: CHRONIC LYMPHOCYTIC LEUKAEMIA
     Dosage: 307 MG, QD, INTRAVENOUS
     Route: 042
     Dates: start: 20080605, end: 20080608
  3. ACYCLOVIR [Concomitant]
  4. ADVAIR DISKUS 100/50 [Concomitant]
  5. ALBUTEROL (SALBUTAMOL SULFATE) [Concomitant]
  6. ATIVAN [Concomitant]
  7. BUPROPION [Concomitant]
  8. COLBETASOL (CLOBETASOL PROPIONATE) [Concomitant]
  9. CYCLOSPORINE [Concomitant]
  10. LANTUS [Concomitant]
  11. LEVAQUIN [Concomitant]
  12. MAGNESIUM SULFATE [Concomitant]
  13. MICAFUNGIN [Concomitant]
  14. MYCOPHENOLATE MOFETIL [Concomitant]
  15. NOVOLOG [Concomitant]
  16. NYSTATIN [Concomitant]
  17. OXYCODONE [Concomitant]
  18. PANTOPRAZOLE [Concomitant]
  19. SINGULAIR [Concomitant]
  20. TACROLIMUS [Concomitant]
  21. VALTREX [Concomitant]
  22. INSULIN GLARGINE [Concomitant]
  23. INSULIN ASPART [Concomitant]
  24. UROKINASE [Concomitant]
  25. NEUPOGEN [Concomitant]
  26. PHYTONADIONE [Concomitant]
  27. POTASSIUM CHLORIDE (POTASSIUM CHLORIDE, SODIUM CHLORIDE) [Concomitant]
  28. VORICONAZOLE [Concomitant]
  29. LEVOFLOXACIN [Concomitant]
  30. VANCOMYCIN HYDROCHLORIDE [Concomitant]
  31. POTASSIUM PHOSPHATE DIBASIC (POTASSIUM PHOSPHATE DIBASIC) [Concomitant]
  32. TOBRAMYCIN [Concomitant]
  33. ZOSYN (PIPERACILLIN SODIUM, TOAZOBACTAM SODIUM) [Concomitant]
  34. FUROSEMIDE (FUROSEIMIDE SODIUM) [Concomitant]
  35. CALCIUM GLUCONATE [Concomitant]
  36. DIATRIZOATE SODIUM W (MEGLUMINE AMIDOTRIZOATE, SODIUM AMIDOTRIZOATE) [Concomitant]
  37. ACETAMINOPHEN [Concomitant]
  38. HYDROCORTISONE (SALICYLIC ACID) [Concomitant]
  39. METRONIDAZOLE (METRONIDAZOLE SODIUM) [Concomitant]
  40. MAGNESIUM (MAGNESIUM OXIDE) [Concomitant]
  41. CEFEPIME [Concomitant]
  42. DIPHENHYDRAMINE (DIPHENHYDRAMINE, SODIUM CITRATE) [Concomitant]
  43. LORAZEPAM [Concomitant]
  44. DEXAMETHASONE [Concomitant]
  45. ONDANSETRON [Concomitant]
  46. FLUTICASONE PROPIONATE [Concomitant]
  47. FLUTICASONE PROPIONATE W (SALMETEROL XINAFOATE) [Concomitant]
  48. MONTELUKAST SODIUM [Concomitant]
  49. PHENYTOIN [Concomitant]
  50. URSODIOL [Concomitant]
  51. FLUCONAZOLE [Concomitant]

REACTIONS (4)
  - ALANINE AMINOTRANSFERASE INCREASED [None]
  - ASPARTATE AMINOTRANSFERASE INCREASED [None]
  - DYSPHAGIA [None]
  - OESOPHAGITIS [None]
